FAERS Safety Report 13782118 (Version 1)
Quarter: 2017Q3

REPORT INFORMATION
  Report Type: Spontaneous
  Country: US (occurrence: US)
  Receive Date: 20170724
  Receipt Date: 20170724
  Transmission Date: 20171127
  Serious: No
  Sender: FDA-Public Use
  Company Number: None

PATIENT
  Age: 75 Year
  Sex: Male
  Weight: 122.79 kg

DRUGS (1)
  1. EMPAGLIFLOZIN [Suspect]
     Active Substance: EMPAGLIFLOZIN
     Indication: DIABETES MELLITUS
     Dosage: 10 MG AM PO
     Route: 048
     Dates: start: 20170516, end: 20170613

REACTIONS (5)
  - Oedema peripheral [None]
  - Condition aggravated [None]
  - Peripheral swelling [None]
  - Oedema [None]
  - Abdominal distension [None]

NARRATIVE: CASE EVENT DATE: 20170613
